FAERS Safety Report 5321411-6 (Version None)
Quarter: 2007Q2

REPORT INFORMATION
  Report Type: 
  Country: None (occurrence: None)
  Receive Date: 20070510
  Receipt Date: 20070504
  Transmission Date: 20071010
  Serious: Yes (Other)
  Sender: FDA-Public Use
  Company Number: US-GENENTECH-234624

PATIENT
  Sex: Female

DRUGS (13)
  1. RANIBIZUMAB [Suspect]
     Indication: MACULAR DEGENERATION
     Route: 031
     Dates: start: 20060223
  2. ARICEPT [Concomitant]
     Indication: DRUG USE FOR UNKNOWN INDICATION
  3. PLETAL [Concomitant]
     Indication: DRUG USE FOR UNKNOWN INDICATION
  4. LEVOXYL [Concomitant]
     Indication: DRUG USE FOR UNKNOWN INDICATION
  5. LIPITOR [Concomitant]
     Indication: DRUG USE FOR UNKNOWN INDICATION
  6. VITAMINS [Concomitant]
     Indication: DRUG USE FOR UNKNOWN INDICATION
  7. FLAXSEED [Concomitant]
     Indication: DRUG USE FOR UNKNOWN INDICATION
  8. FLONASE [Concomitant]
     Indication: DRUG USE FOR UNKNOWN INDICATION
  9. MIACALCIN [Concomitant]
     Indication: DRUG USE FOR UNKNOWN INDICATION
  10. FELODIPINE [Concomitant]
     Indication: DRUG USE FOR UNKNOWN INDICATION
  11. NAPROXEN [Concomitant]
     Indication: DRUG USE FOR UNKNOWN INDICATION
  12. CELEXA [Concomitant]
     Indication: DRUG USE FOR UNKNOWN INDICATION
  13. CALCIUM CHLORIDE [Concomitant]
     Indication: DRUG USE FOR UNKNOWN INDICATION

REACTIONS (1)
  - CEREBROVASCULAR ACCIDENT [None]
